FAERS Safety Report 7115867-6 (Version None)
Quarter: 2010Q4

REPORT INFORMATION
  Report Type: 
  Country: None (occurrence: None)
  Receive Date: 20101122
  Receipt Date: 20101108
  Transmission Date: 20110411
  Serious: Yes (Hospitalization)
  Sender: FDA-Public Use
  Company Number: US-ELI_LILLY_AND_COMPANY-US200911002497

PATIENT
  Sex: Female

DRUGS (8)
  1. FORTEO [Suspect]
     Indication: OSTEOPOROSIS
     Dosage: 20 UG, DAILY (1/D)
  2. FORTEO [Suspect]
     Dosage: 20 UG, DAILY (1/D)
  3. PLAVIX [Concomitant]
  4. ADVAIR DISKUS 100/50 [Concomitant]
     Dosage: 1 D/F, 2/D
  5. NORVASC [Concomitant]
     Dosage: 1 D/F, DAILY (1/D)
  6. PRILOSEC [Concomitant]
  7. FLEXERIL [Concomitant]
     Dosage: 1 D/F, EACH EVENING
  8. TRAVATAN [Concomitant]
     Dosage: 1 GTT, EACH EVENING

REACTIONS (5)
  - ALOPECIA [None]
  - ARTERIAL OCCLUSIVE DISEASE [None]
  - HAIR DISORDER [None]
  - INJECTION SITE HAEMATOMA [None]
  - INJECTION SITE HAEMORRHAGE [None]
